FAERS Safety Report 12541096 (Version 3)
Quarter: 2016Q3

REPORT INFORMATION
  Report Type: Spontaneous
  Country: None (occurrence: RU)
  Receive Date: 20160708
  Receipt Date: 20160902
  Transmission Date: 20161109
  Serious: Yes (Other)
  Sender: FDA-Public Use
  Company Number: RU-MERCK KGAA-1054817

PATIENT

DRUGS (1)
  1. NOVOTHYROX [Suspect]
     Active Substance: LEVOTHYROXINE SODIUM

REACTIONS (8)
  - Pain [None]
  - Tachycardia [None]
  - Palpitations [None]
  - Angina pectoris [None]
  - Cough [None]
  - Counterfeit drug administered [None]
  - Paralysis [None]
  - Dyspnoea [None]
